FAERS Safety Report 4453039-4 (Version None)
Quarter: 2004Q3

REPORT INFORMATION
  Report Type: 
  Country: None (occurrence: None)
  Receive Date: 20040916
  Receipt Date: 20040916
  Transmission Date: 20050211
  Serious: Yes (Hospitalization, Other)
  Sender: FDA-Public Use
  Company Number: None

PATIENT
  Age: 17 Year
  Sex: Female
  Weight: 49.8957 kg

DRUGS (4)
  1. NEURONTIN [Suspect]
     Indication: BIPOLAR DISORDER
     Dates: start: 20010311, end: 20010411
  2. NEURONTIN [Suspect]
     Indication: DEPRESSION
     Dates: start: 20010311, end: 20010411
  3. LEXAPRO [Suspect]
     Indication: BIPOLAR DISORDER
     Dates: start: 20020106, end: 20020506
  4. LEXAPRO [Suspect]
     Indication: DEPRESSION
     Dates: start: 20020106, end: 20020506

REACTIONS (4)
  - CONVULSION [None]
  - DEPRESSION [None]
  - DRUG INEFFECTIVE [None]
  - OFF LABEL USE [None]
